FAERS Safety Report 13482211 (Version 1)
Quarter: 2017Q2

REPORT INFORMATION
  Report Type: Spontaneous
  Country: GB (occurrence: GB)
  Receive Date: 20170426
  Receipt Date: 20170426
  Transmission Date: 20170830
  Serious: Yes (Life-Threatening)
  Sender: FDA-Public Use
  Company Number: GB-CONCORDIA PHARMACEUTICALS INC.-GSH201704-002584

PATIENT
  Age: 0 Year
  Sex: Male
  Weight: 13.92 kg

DRUGS (6)
  1. PREDNISOLONE. [Suspect]
     Active Substance: PREDNISOLONE
     Indication: ANAPHYLACTIC REACTION
     Route: 048
     Dates: start: 20170407, end: 20170407
  2. PIRITON [Concomitant]
     Active Substance: CHLORPHENIRAMINE MALEATE
  3. JEXT [Concomitant]
  4. PROBIOTIC NUTRITIONAL SUPPLEMENT [Concomitant]
  5. ANTIHISTAMINES [Concomitant]
     Active Substance: ANTIHISTAMINES NOS
     Dates: start: 20170407, end: 20170407
  6. VITAMIN C [Concomitant]
     Active Substance: ASCORBIC ACID

REACTIONS (1)
  - Pain [Recovered/Resolved]

NARRATIVE: CASE EVENT DATE: 20170407
